FAERS Safety Report 10619277 (Version 2)
Quarter: 2014Q4

REPORT INFORMATION
  Report Type: Spontaneous
  Country: BR (occurrence: BR)
  Receive Date: 20141202
  Receipt Date: 20141211
  Transmission Date: 20150529
  Serious: Yes (Other)
  Sender: FDA-Public Use
  Company Number: BR-PFIZER INC-2014324867

PATIENT
  Age: 90 Year
  Sex: Female

DRUGS (1)
  1. DETRUSITOL LA [Suspect]
     Active Substance: TOLTERODINE TARTRATE
     Indication: NOCTURIA
     Dosage: UNK
     Dates: start: 20140926

REACTIONS (16)
  - Somnolence [Not Recovered/Not Resolved]
  - Drug effect incomplete [Unknown]
  - Cardiac arrest [Unknown]
  - Blood pressure increased [Unknown]
  - Disorientation [Unknown]
  - Feeling hot [Unknown]
  - Dizziness [Not Recovered/Not Resolved]
  - Activities of daily living impaired [Not Recovered/Not Resolved]
  - Transient ischaemic attack [Unknown]
  - Vision blurred [Not Recovered/Not Resolved]
  - Visual impairment [Unknown]
  - Headache [Unknown]
  - Dry mouth [Unknown]
  - Nausea [Unknown]
  - Pruritus generalised [Not Recovered/Not Resolved]
  - Fatigue [Unknown]

NARRATIVE: CASE EVENT DATE: 2014
